FAERS Safety Report 26189145 (Version 1)
Quarter: 2025Q4

REPORT INFORMATION
  Report Type: Spontaneous
  Country: US (occurrence: US)
  Receive Date: 20251223
  Receipt Date: 20251223
  Transmission Date: 20260118
  Serious: No
  Sender: AUROBINDO
  Company Number: US-AUROBINDO-AUR-APL-2025-012280

PATIENT
  Sex: Female
  Weight: 81.6 kg

DRUGS (12)
  1. AMOXICILLIN [Suspect]
     Active Substance: AMOXICILLIN
     Indication: Product used for unknown indication
     Dosage: UNK
     Route: 065
  2. KLONOPIN [Concomitant]
     Active Substance: CLONAZEPAM
     Indication: Product used for unknown indication
     Dosage: 0.5 MILLIGRAM, TWO TIMES A DAY (TAKE 1 TABLET (0.5 MG TOTAL) BY MOUTH 2 (TWO) TIMES A DAY FOR 5 DAYS)
     Route: 061
     Dates: start: 20250115, end: 20250121
  3. FYCOMPA [Concomitant]
     Active Substance: PERAMPANEL
     Indication: Product used for unknown indication
     Dosage: 10 MILLIGRAM, DAILY (11-AUG-2022 SINCE THEN HIGHER DOSE WERE TRIED , BUT SHE RETURNED TO PREVIOUS DOSE OF 10 MG)
     Route: 065
     Dates: start: 20250124, end: 20250124
  4. ATIVAN [Concomitant]
     Active Substance: LORAZEPAM
     Indication: Product used for unknown indication
     Dosage: UNK
     Route: 065
  5. VIMPAT [Concomitant]
     Active Substance: LACOSAMIDE
     Indication: Product used for unknown indication
     Dosage: 15 MILLIGRAM, DAILY
     Route: 065
  6. VIMPAT [Concomitant]
     Active Substance: LACOSAMIDE
     Dosage: 2 DOSAGE FORM, DAILY (TAKE 2 TABLETS (300 MG TOTAL) BY MOUTH EVERY 12 HRS)
     Route: 065
  7. lbutorol [Concomitant]
     Indication: Product used for unknown indication
     Dosage: UNK
     Route: 065
  8. IBUPROFEN [Concomitant]
     Active Substance: IBUPROFEN
     Indication: Product used for unknown indication
     Dosage: 600 MILLIGRAM
     Route: 061
  9. LO LOESTRIN FE [Concomitant]
     Active Substance: ETHINYL ESTRADIOL\NORETHINDRONE ACETATE
     Indication: Product used for unknown indication
     Dosage: 1 DOSAGE FORM, DAILY (TAKE 1 TABLET BY MOUTH DAILY)
     Route: 061
  10. 7 [Concomitant]
     Indication: Product used for unknown indication
     Dosage: 2 DOSAGE FORM, TWO TIMES A DAY (TAKE 2 CAPSULES (500 MG TOTAL) BY MOUTH EVERY 12 (TWELVE))
     Route: 065
  11. FLONASE [Concomitant]
     Active Substance: FLUTICASONE PROPIONATE
     Indication: Product used for unknown indication
     Dosage: ADMINISTER 1 SPRAY INTO EACH NOSTRIL AS NEEDED  (PATIENT NOT TAKING: REPORTED ON 10/14/2024),.
     Route: 065
  12. FOLVITE [Concomitant]
     Active Substance: FOLIC ACID
     Indication: Product used for unknown indication
     Dosage: TAKE 1 TABLET BY MOUTH EVERY DAY (PATIENT NOT TAKING: REPORTED ON 10/14/2024)

REACTIONS (1)
  - Urticaria [Not Recovered/Not Resolved]

NARRATIVE: CASE EVENT DATE: 20250118
